FAERS Safety Report 7719520-7 (Version None)
Quarter: 2011Q3

REPORT INFORMATION
  Report Type: 
  Country: None (occurrence: None)
  Receive Date: 20110830
  Receipt Date: 20110823
  Transmission Date: 20111222
  Serious: Yes (Hospitalization, Other)
  Sender: FDA-Public Use
  Company Number: PHHY2011CA72891

PATIENT
  Age: 53 Year
  Sex: Male

DRUGS (2)
  1. ENALAPRIL MALEATE [Suspect]
     Indication: HYPERTENSION
     Dosage: 1.25 MG
     Route: 042
  2. NORMODYNE [Suspect]
     Indication: HYPERTENSION
     Dosage: 90 MG OVER 60 MIN
     Route: 042

REACTIONS (3)
  - COMA SCALE ABNORMAL [None]
  - BLOOD PRESSURE INCREASED [None]
  - BLOOD PRESSURE DECREASED [None]
